FAERS Safety Report 7990057-3 (Version None)
Quarter: 2011Q4

REPORT INFORMATION
  Report Type: 
  Country: None (occurrence: None)
  Receive Date: 20111219
  Receipt Date: 20110601
  Transmission Date: 20120403
  Serious: No
  Sender: FDA-Public Use
  Company Number: US-ASTRAZENECA-2011SE33813

PATIENT
  Age: 70 Year
  Sex: Female
  Weight: 77.1 kg

DRUGS (2)
  1. CRESTOR [Suspect]
     Route: 048
     Dates: start: 20101213
  2. ASPIRIN [Concomitant]

REACTIONS (11)
  - THYROID FUNCTION TEST ABNORMAL [None]
  - GAIT DISTURBANCE [None]
  - OEDEMA PERIPHERAL [None]
  - FATIGUE [None]
  - PAIN [None]
  - WEIGHT INCREASED [None]
  - MUSCULAR WEAKNESS [None]
  - NOCTURIA [None]
  - ARTHRALGIA [None]
  - NAIL GROWTH ABNORMAL [None]
  - HYPERHIDROSIS [None]
